FAERS Safety Report 16969632 (Version 1)
Quarter: 2019Q4

REPORT INFORMATION
  Report Type: Spontaneous
  Country: US (occurrence: US)
  Receive Date: 20190911
  Receipt Date: 20190911
  Transmission Date: 20200122
  Serious: No
  Sender: FDA-Public Use
  Company Number: None

PATIENT
  Age: 50 Year
  Sex: Male

DRUGS (1)
  1. STELARA [Suspect]
     Active Substance: USTEKINUMAB
     Dosage: ?          OTHER DOSE:45/0.5 MG/ML;?
     Route: 058
     Dates: start: 20180814

REACTIONS (2)
  - Condition aggravated [None]
  - Treatment noncompliance [None]

NARRATIVE: CASE EVENT DATE: 20190828
